FAERS Safety Report 7127579-3 (Version None)
Quarter: 2010Q4

REPORT INFORMATION
  Report Type: 
  Country: None (occurrence: None)
  Receive Date: 20101129
  Receipt Date: 20101118
  Transmission Date: 20110411
  Serious: Yes (Other)
  Sender: FDA-Public Use
  Company Number: PHHY2010AR78583

PATIENT
  Age: 52 Year
  Sex: Female

DRUGS (1)
  1. ACLASTA [Suspect]
     Dosage: UNK
     Dates: start: 20090915

REACTIONS (2)
  - HEPATIC ENZYME INCREASED [None]
  - PYREXIA [None]
